FAERS Safety Report 4886704-5 (Version None)
Quarter: 2006Q1

REPORT INFORMATION
  Report Type: 
  Country: None (occurrence: None)
  Receive Date: 20060120
  Receipt Date: 20051128
  Transmission Date: 20060701
  Serious: Yes (Other)
  Sender: FDA-Public Use
  Company Number: PHBS2005CO17767

PATIENT
  Age: 62 Year
  Sex: Male

DRUGS (3)
  1. OPIOIDS [Concomitant]
     Route: 065
  2. DOCETAXEL [Concomitant]
     Route: 065
  3. ZOMETA [Suspect]
     Indication: METASTASES TO BONE
     Dosage: 4 MG, QMO
     Route: 042
     Dates: start: 20050801, end: 20051101

REACTIONS (7)
  - BONE PAIN [None]
  - DRUG INEFFECTIVE [None]
  - PARAPLEGIA [None]
  - POOR QUALITY DRUG ADMINISTERED [None]
  - RADIOTHERAPY TO BONE [None]
  - SPINAL CORD COMPRESSION [None]
  - THERAPY NON-RESPONDER [None]
